FAERS Safety Report 14228025 (Version 1)
Quarter: 2017Q4

REPORT INFORMATION
  Report Type: Report from Study
  Country: US (occurrence: US)
  Receive Date: 20171127
  Receipt Date: 20171127
  Transmission Date: 20180321
  Serious: Yes (Hospitalization)
  Sender: FDA-Public Use
  Company Number: US-ACTELION-A-NJ2017-162659

PATIENT
  Age: 71 Year
  Sex: Female
  Weight: 77.55 kg

DRUGS (5)
  1. LASIX [Concomitant]
     Active Substance: FUROSEMIDE
  2. OPSUMIT [Suspect]
     Active Substance: MACITENTAN
     Indication: PULMONARY ARTERIAL HYPERTENSION
     Dosage: 10 MG, QD
     Route: 048
     Dates: start: 20170315
  3. ADEMPAS [Concomitant]
     Active Substance: RIOCIGUAT
  4. UPTRAVI [Suspect]
     Active Substance: SELEXIPAG
     Indication: PULMONARY ARTERIAL HYPERTENSION
     Route: 048
  5. ASPIRIN. [Concomitant]
     Active Substance: ASPIRIN

REACTIONS (8)
  - Pleural effusion [Recovered/Resolved]
  - Dyspnoea [Unknown]
  - Cardiac failure congestive [Unknown]
  - Cardiac arrest [Unknown]
  - Endotracheal intubation [Recovered/Resolved]
  - Pain [Unknown]
  - Fluid overload [Unknown]
  - Cardiac pacemaker replacement [Recovered/Resolved]

NARRATIVE: CASE EVENT DATE: 20171031
